FAERS Safety Report 6640284-2 (Version None)
Quarter: 2010Q1

REPORT INFORMATION
  Report Type: 
  Country: None (occurrence: None)
  Receive Date: 20100318
  Receipt Date: 20100308
  Transmission Date: 20100710
  Serious: Yes (Other)
  Sender: FDA-Public Use
  Company Number: US-JNJFOC-20100108975

PATIENT
  Age: 85 Year
  Sex: Female
  Weight: 88.45 kg

DRUGS (3)
  1. TYLENOL [Suspect]
     Route: 048
  2. TYLENOL [Suspect]
     Indication: ARTHRITIS
     Dosage: 650-1300 MG 3 TIMES A DAY
     Route: 048
  3. UNKNOWN MEDICATION [Concomitant]
     Indication: BLOOD PRESSURE ABNORMAL

REACTIONS (4)
  - ABDOMINAL DISCOMFORT [None]
  - POLLAKIURIA [None]
  - PRODUCT QUALITY ISSUE [None]
  - RENAL DISORDER [None]
